FAERS Safety Report 5804784-7 (Version None)
Quarter: 2008Q3

REPORT INFORMATION
  Report Type: 
  Country: None (occurrence: None)
  Receive Date: 20080707
  Receipt Date: 20080307
  Transmission Date: 20090109
  Serious: No
  Sender: FDA-Public Use
  Company Number: 551922

PATIENT
  Age: 35 Year
  Sex: Male

DRUGS (8)
  1. CELLCEPT [Suspect]
     Indication: RENAL AND PANCREAS TRANSPLANT
     Dosage: 1000 MG 2 PER DAY ORAL
     Route: 048
     Dates: start: 19970101
  2. BENICAR [Concomitant]
  3. ATENOLOL [Concomitant]
  4. BACTRIM DS [Concomitant]
  5. CLONIDINE [Concomitant]
  6. ACIPHEX [Concomitant]
  7. PREDNISONE [Concomitant]
  8. NEORAL [Concomitant]

REACTIONS (2)
  - RENAL FAILURE [None]
  - SEBACEOUS HYPERPLASIA [None]
